FAERS Safety Report 12244052 (Version 2)
Quarter: 2016Q2

REPORT INFORMATION
  Report Type: Spontaneous
  Country: FR (occurrence: FR)
  Receive Date: 20160406
  Receipt Date: 20160503
  Transmission Date: 20160815
  Serious: Yes (Hospitalization, Other)
  Sender: FDA-Public Use
  Company Number: FR-GILEAD-2016-0206483

PATIENT
  Age: 77 Year
  Sex: Female
  Weight: 52 kg

DRUGS (3)
  1. MABTHERA [Concomitant]
     Active Substance: RITUXIMAB
     Dosage: UNK
     Route: 042
     Dates: start: 20160107, end: 20160107
  2. ZYDELIG [Suspect]
     Active Substance: IDELALISIB
     Indication: CHRONIC LYMPHOCYTIC LEUKAEMIA RECURRENT
     Dosage: 150 MG, BID
     Route: 048
     Dates: start: 20150625, end: 201602
  3. NEULASTA [Concomitant]
     Active Substance: PEGFILGRASTIM
     Dosage: UNK
     Route: 058
     Dates: start: 20160108, end: 20160108

REACTIONS (7)
  - Hypogammaglobulinaemia [Not Recovered/Not Resolved]
  - Dehydration [Unknown]
  - Interstitial lung disease [Recovered/Resolved]
  - Neutropenia [Recovering/Resolving]
  - Prerenal failure [Unknown]
  - Mucosal inflammation [Not Recovered/Not Resolved]
  - Malnutrition [Unknown]

NARRATIVE: CASE EVENT DATE: 20160208
